FAERS Safety Report 6723357-5 (Version None)
Quarter: 2010Q2

REPORT INFORMATION
  Report Type: 
  Country: None (occurrence: None)
  Receive Date: 20100511
  Receipt Date: 20100503
  Transmission Date: 20101027
  Serious: Yes (Hospitalization)
  Sender: FDA-Public Use
  Company Number: DK-1181116

PATIENT
  Age: 38 Year
  Sex: Female

DRUGS (2)
  1. CYCLOGYL [Suspect]
     Indication: MYDRIASIS
     Dosage: OPHTHALMIC
     Route: 047
     Dates: start: 20080521, end: 20080521
  2. MYDRIACYL [Suspect]
     Indication: MYDRIASIS
     Dosage: OPHTHALMIC
     Route: 047
     Dates: start: 20080521, end: 20080521

REACTIONS (11)
  - AMNESIA [None]
  - APHASIA [None]
  - CONFUSIONAL STATE [None]
  - DISTURBANCE IN ATTENTION [None]
  - DYSSTASIA [None]
  - FALL [None]
  - FATIGUE [None]
  - HEMIPARESIS [None]
  - MALAISE [None]
  - MEMORY IMPAIRMENT [None]
  - OBSESSIVE-COMPULSIVE DISORDER [None]
